FAERS Safety Report 5068342-7 (Version None)
Quarter: 2006Q3

REPORT INFORMATION
  Report Type: 
  Country: None (occurrence: None)
  Receive Date: 20060802
  Receipt Date: 20050809
  Transmission Date: 20061208
  Serious: No
  Sender: FDA-Public Use
  Company Number: US-BRISTOL-MYERS SQUIBB COMPANY-13068069

PATIENT
  Age: 74 Year
  Sex: Male
  Weight: 86 kg

DRUGS (9)
  1. COUMADIN [Suspect]
     Indication: ATRIAL FIBRILLATION
     Dosage: APRIL OR MAY 2005
     Dates: start: 20050101
  2. ATENOLOL [Concomitant]
  3. AXID [Concomitant]
  4. ECOTRIN [Concomitant]
  5. LISINOPRIL [Concomitant]
  6. MOBIC [Concomitant]
  7. PACERONE [Concomitant]
  8. ZANTAC [Concomitant]
  9. ZOCOR [Concomitant]

REACTIONS (1)
  - BREAST TENDERNESS [None]
